FAERS Safety Report 6822090-9 (Version None)
Quarter: 2010Q3

REPORT INFORMATION
  Report Type: 
  Country: None (occurrence: None)
  Receive Date: 20100708
  Receipt Date: 20100628
  Transmission Date: 20110219
  Serious: No
  Sender: FDA-Public Use
  Company Number: US-JNJFOC-20100700053

PATIENT
  Sex: Male
  Weight: 131.54 kg

DRUGS (21)
  1. FENTANYL [Suspect]
     Indication: PAIN
     Route: 062
  2. PREDNISONE [Concomitant]
     Indication: MULTIPLE ALLERGIES
     Route: 048
  3. PREDNISONE [Concomitant]
     Indication: RASH
     Route: 048
  4. TORSEMIDE [Concomitant]
     Indication: DIURETIC THERAPY
     Route: 048
  5. HYDROCODONE BITARTRATE [Concomitant]
     Indication: PAIN
     Dosage: 10/325 MG
     Route: 048
  6. AMIODARONE HCL [Concomitant]
     Indication: HEART RATE
     Route: 048
  7. UNKNOWN MEDICATION [Concomitant]
     Indication: RASH
     Route: 048
  8. ASPIRIN [Concomitant]
     Indication: ADVERSE DRUG REACTION
     Route: 048
  9. ASPIRIN [Concomitant]
     Indication: CARDIAC DISORDER
     Route: 048
  10. NIACIN [Concomitant]
     Indication: BLOOD CHOLESTEROL INCREASED
     Route: 048
  11. SKELAXIN [Concomitant]
     Indication: MUSCLE RELAXANT THERAPY
     Route: 048
  12. NAPROXEN [Concomitant]
     Indication: PAIN
     Route: 048
  13. LOSARTAN POSTASSIUM [Concomitant]
     Indication: CARDIAC FAILURE
     Route: 048
  14. NEXIUM [Concomitant]
     Indication: GASTROOESOPHAGEAL REFLUX DISEASE
     Route: 048
  15. METOPROLOL XL [Concomitant]
     Indication: CARDIAC DISORDER
     Route: 048
  16. ZOLPIDEM [Concomitant]
     Indication: SLEEP DISORDER THERAPY
     Route: 048
  17. CITALOPRAM HYDROBROMIDE [Concomitant]
     Indication: DEPRESSION
     Route: 048
  18. LIPITOR [Concomitant]
     Indication: GASTROOESOPHAGEAL REFLUX DISEASE
     Route: 048
  19. POTASSIUM CHLORIDE [Concomitant]
     Indication: BLOOD POTASSIUM DECREASED
     Route: 048
  20. REQUIP [Concomitant]
     Indication: PAIN IN EXTREMITY
     Route: 048
  21. LEVOTHYROXINE SODIUM [Concomitant]
     Indication: THYROID DISORDER
     Route: 048

REACTIONS (1)
  - WRONG TECHNIQUE IN DRUG USAGE PROCESS [None]
